FAERS Safety Report 10254477 (Version 1)
Quarter: 2014Q2

REPORT INFORMATION
  Report Type: Spontaneous
  Country: US (occurrence: US)
  Receive Date: 20140624
  Receipt Date: 20140624
  Transmission Date: 20141212
  Serious: No
  Sender: FDA-Public Use
  Company Number: US-BIOGENIDEC-2014BI058328

PATIENT
  Age: 62 Year
  Sex: Female

DRUGS (12)
  1. TECFIDERA [Suspect]
     Indication: MULTIPLE SCLEROSIS
     Route: 048
  2. ADVAIR DISKUS [Concomitant]
  3. BACLOFEN [Concomitant]
  4. BYSTOLIC [Concomitant]
  5. DOC-Q-LACE [Concomitant]
  6. FAMOTIDINE [Concomitant]
  7. GABAPENTIN [Concomitant]
  8. HYDROCHLORTHIAZIDE [Concomitant]
  9. MONTELUKAST SODIUM [Concomitant]
  10. PAROXETINE HCL [Concomitant]
  11. TRAZODONE HCL [Concomitant]
  12. VENLAFAXINE HCL ER [Concomitant]

REACTIONS (1)
  - Pollakiuria [Unknown]
